FAERS Safety Report 14925080 (Version 1)
Quarter: 2018Q2

REPORT INFORMATION
  Report Type: Spontaneous
  Country: CA (occurrence: CA)
  Receive Date: 20180522
  Receipt Date: 20180522
  Transmission Date: 20180711
  Serious: Yes (Other)
  Sender: FDA-Public Use
  Company Number: CA-ABBVIE-18K-028-2363465-00

PATIENT
  Sex: Female

DRUGS (1)
  1. HUMIRA [Suspect]
     Active Substance: ADALIMUMAB
     Indication: RHEUMATOID ARTHRITIS
     Route: 058
     Dates: end: 201804

REACTIONS (5)
  - Drug intolerance [Unknown]
  - Injection site pruritus [Not Recovered/Not Resolved]
  - Genital abscess [Unknown]
  - Depression [Not Recovered/Not Resolved]
  - Epilepsy [Not Recovered/Not Resolved]
